FAERS Safety Report 10058468 (Version 3)
Quarter: 2014Q2

REPORT INFORMATION
  Report Type: Spontaneous
  Country: SE (occurrence: None)
  Receive Date: 20140402
  Receipt Date: 20140626
  Transmission Date: 20141212
  Serious: Yes (Death)
  Sender: FDA-Public Use
  Company Number: 2262604

PATIENT
  Age: 69 Year
  Sex: Female

DRUGS (11)
  1. PACLITAXEL [Suspect]
     Indication: BREAST CANCER
     Route: 042
     Dates: start: 20140317, end: 20140317
  2. PANTOLOC /01263204/ [Concomitant]
  3. INSULIN [Concomitant]
  4. CALCICHEW D3 [Concomitant]
  5. LASIX /00032601/ [Concomitant]
  6. LOSARTAN [Concomitant]
  7. BETAPRED [Concomitant]
  8. ALVEDON [Concomitant]
  9. TERRACORTRIL MED POLYMYXIN B [Concomitant]
  10. LANTUS [Concomitant]
  11. KALEORID [Concomitant]

REACTIONS (3)
  - Death [None]
  - Cardiac arrest [None]
  - Anaphylactic reaction [None]
